FAERS Safety Report 8956470 (Version 3)
Quarter: 2012Q4

REPORT INFORMATION
  Report Type: 
  Country: TR (occurrence: TR)
  Receive Date: 20121210
  Receipt Date: 20121221
  Transmission Date: 20130627
  Serious: Yes (Hospitalization)
  Sender: FDA-Public Use
  Company Number: TR-009507513-1212TUR002072

PATIENT
  Age: 49 Year
  Sex: Male
  Weight: 96 kg

DRUGS (2)
  1. JANUVIA [Suspect]
     Indication: DIABETES MELLITUS
     Dosage: UNK, qd
     Route: 048
     Dates: end: 20121205
  2. DIAFORMIN [Concomitant]
     Dosage: UNK, bid

REACTIONS (1)
  - Erythema multiforme [Not Recovered/Not Resolved]
